FAERS Safety Report 11050382 (Version 5)
Quarter: 2016Q4

REPORT INFORMATION
  Report Type: Spontaneous
  Country: US (occurrence: US)
  Receive Date: 20150421
  Receipt Date: 20161115
  Transmission Date: 20170206
  Serious: No
  Sender: FDA-Public Use
  Company Number: US-009507513-1504USA017100

PATIENT
  Sex: Male
  Weight: 72.56 kg

DRUGS (1)
  1. PROPECIA [Suspect]
     Active Substance: FINASTERIDE
     Indication: ALOPECIA
     Dosage: 1 MG, QD
     Route: 048
     Dates: start: 20040101, end: 201307

REACTIONS (6)
  - Abdominal pain [Unknown]
  - Erectile dysfunction [Unknown]
  - Grief reaction [Unknown]
  - Sexual dysfunction [Unknown]
  - Nausea [Unknown]
  - Fatigue [Unknown]

NARRATIVE: CASE EVENT DATE: 200506
